FAERS Safety Report 8463070-X (Version None)
Quarter: 2012Q2

REPORT INFORMATION
  Report Type: 
  Country: None (occurrence: None)
  Receive Date: 20120323
  Receipt Date: 20110831
  Transmission Date: 20120825
  Serious: Yes (Hospitalization)
  Sender: FDA-Public Use
  Company Number: 163-21880-11083627

PATIENT
  Age: 75 Year
  Sex: Female
  Weight: 119 kg

DRUGS (1)
  1. REVLIMID [Suspect]
     Indication: MULTIPLE MYELOMA
     Dosage: 25 MG, DAILY FOR 21 DAYS, OFF 7
     Dates: start: 20110801

REACTIONS (5)
  - HYPOTENSION [None]
  - DEHYDRATION [None]
  - ASTHENIA [None]
  - BLOOD POTASSIUM DECREASED [None]
  - DIARRHOEA [None]
